FAERS Safety Report 23325596 (Version 1)
Quarter: 2023Q4

REPORT INFORMATION
  Report Type: Spontaneous
  Country: BR (occurrence: BR)
  Receive Date: 20231221
  Receipt Date: 20231221
  Transmission Date: 20240110
  Serious: Yes (Other)
  Sender: FDA-Public Use
  Company Number: BR-JNJFOC-20231239706

PATIENT
  Age: 66 Year
  Sex: Female

DRUGS (1)
  1. HALDOL [Suspect]
     Active Substance: HALOPERIDOL
     Indication: Product used for unknown indication
     Dosage: DOSE: HALF TABLE IN MORNING AND 1 AT NIGHT
     Route: 048

REACTIONS (23)
  - Urinary retention [Unknown]
  - Peripheral paralysis [Unknown]
  - Breast cancer [Unknown]
  - Epilepsy [Unknown]
  - Tardive dyskinesia [Unknown]
  - Dizziness [Unknown]
  - Gait inability [Unknown]
  - Decreased appetite [Unknown]
  - Amnesia [Unknown]
  - Motor dysfunction [Unknown]
  - Dysgraphia [Unknown]
  - Pruritus [Unknown]
  - Vision blurred [Unknown]
  - Fatigue [Unknown]
  - Nausea [Unknown]
  - Dysphagia [Unknown]
  - Vomiting [Unknown]
  - Weight increased [Unknown]
  - Cardiac disorder [Unknown]
  - Loss of personal independence in daily activities [Unknown]
  - Adverse drug reaction [Unknown]
  - Sedation [Unknown]
  - Anaemia [Unknown]
